FAERS Safety Report 15480570 (Version 1)
Quarter: 2018Q4

REPORT INFORMATION
  Report Type: Spontaneous
  Country: DE (occurrence: DE)
  Receive Date: 20181010
  Receipt Date: 20181010
  Transmission Date: 20190205
  Serious: Yes (Hospitalization)
  Sender: FDA-Public Use
  Company Number: DE-JNJFOC-20180935492

PATIENT
  Sex: Female

DRUGS (2)
  1. REGAINE SCHAUM ALLGEMEIN [Suspect]
     Active Substance: MINOXIDIL
     Route: 061
  2. REGAINE SCHAUM ALLGEMEIN [Suspect]
     Active Substance: MINOXIDIL
     Indication: PRODUCT USED FOR UNKNOWN INDICATION
     Route: 061

REACTIONS (3)
  - Cardiovascular disorder [Unknown]
  - Application site pain [Unknown]
  - Dizziness [Unknown]
